FAERS Safety Report 4967064-8 (Version None)
Quarter: 2006Q2

REPORT INFORMATION
  Report Type: 
  Country: None (occurrence: None)
  Receive Date: 20060408
  Receipt Date: 20060330
  Transmission Date: 20061013
  Serious: Yes (Hospitalization)
  Sender: FDA-Public Use
  Company Number: GR-ABBOTT-06P-066-0329596-00

PATIENT
  Age: 70 Year
  Sex: Male

DRUGS (1)
  1. KLARICID SACHETS [Suspect]
     Indication: ABSCESS
     Route: 048
     Dates: start: 20060101, end: 20060101

REACTIONS (1)
  - MYASTHENIA GRAVIS [None]
